FAERS Safety Report 4818988-3 (Version None)
Quarter: 2005Q4

REPORT INFORMATION
  Report Type: 
  Country: None (occurrence: None)
  Receive Date: 20051102
  Receipt Date: 20051102
  Transmission Date: 20060501
  Serious: Yes (Disabling)
  Sender: FDA-Public Use
  Company Number: None

PATIENT
  Age: 75 Year
  Sex: Female
  Weight: 58.9676 kg

DRUGS (11)
  1. GENTAMICIN [Suspect]
     Indication: BACTERIAL INFECTION
     Dosage: 60 MG IV 2X/DAY
     Route: 042
     Dates: start: 20050620, end: 20050725
  2. PENICILLIN [Concomitant]
  3. COUMADIN [Concomitant]
  4. METOPROLOL [Concomitant]
  5. ASPIRIN [Concomitant]
  6. LASIX [Concomitant]
  7. KLOR-CON [Concomitant]
  8. VYTORIN [Concomitant]
  9. CARDIZEM [Concomitant]
  10. ZOLOFT [Concomitant]
  11. PROTONIX [Concomitant]

REACTIONS (4)
  - BALANCE DISORDER [None]
  - INFUSION RELATED REACTION [None]
  - INNER EAR DISORDER [None]
  - TINNITUS [None]
